FAERS Safety Report 7585725-1 (Version None)
Quarter: 2011Q2

REPORT INFORMATION
  Report Type: 
  Country: None (occurrence: None)
  Receive Date: 20110629
  Receipt Date: 20110629
  Transmission Date: 20111010
  Serious: Yes (Death)
  Sender: FDA-Public Use
  Company Number: None

PATIENT
  Age: 64 Year
  Sex: Male

DRUGS (7)
  1. PSEUDOEPHEDRINE HCL [Concomitant]
  2. DIGOXIN [Concomitant]
  3. SIMVASTATIN [Concomitant]
  4. REVLIMID [Suspect]
     Indication: ACUTE MYELOID LEUKAEMIA
     Dosage: REVLIMID 50MG DAILY X21D/28D ORALLY
     Route: 048
     Dates: start: 20100727, end: 20100814
  5. METOPROLOL TARTRATE [Concomitant]
  6. OMEPRAZOLE [Concomitant]
  7. LAORATADINE [Concomitant]

REACTIONS (9)
  - HYPOXIA [None]
  - ATRIAL FIBRILLATION [None]
  - LUNG CONSOLIDATION [None]
  - COUGH [None]
  - REFUSAL OF TREATMENT BY PATIENT [None]
  - DYSPNOEA [None]
  - NO THERAPEUTIC RESPONSE [None]
  - RESPIRATORY DISTRESS [None]
  - PYREXIA [None]
